FAERS Safety Report 4420445-3 (Version None)
Quarter: 2004Q3

REPORT INFORMATION
  Report Type: 
  Country: None (occurrence: None)
  Receive Date: 20040809
  Receipt Date: 20040302
  Transmission Date: 20050211
  Serious: No
  Sender: FDA-Public Use
  Company Number: US-GLAXOSMITHKLINE-A0500724A

PATIENT
  Age: 18 Year
  Sex: Female

DRUGS (4)
  1. PAXIL CR [Suspect]
     Indication: MOOD SWINGS
     Dosage: 12.5MG PER DAY
     Route: 048
     Dates: start: 20030101
  2. STRATTERA [Suspect]
     Dates: start: 20030101, end: 20030101
  3. LORATADINE [Concomitant]
  4. CONCERTA [Concomitant]

REACTIONS (2)
  - FEELING ABNORMAL [None]
  - SOMNOLENCE [None]
